FAERS Safety Report 5333143-9 (Version None)
Quarter: 2007Q2

REPORT INFORMATION
  Report Type: 
  Country: None (occurrence: None)
  Receive Date: 20070524
  Receipt Date: 20070514
  Transmission Date: 20071010
  Serious: Yes (Death, Hospitalization)
  Sender: FDA-Public Use
  Company Number: SEWYE640514MAY07

PATIENT
  Sex: Female

DRUGS (2)
  1. EFFEXOR [Suspect]
     Indication: DEPRESSION
     Dosage: UNKNOWN DOSAGE, BUT POSSIBLE INTAKE MAY BE UP TO 30 G
     Route: 048
     Dates: end: 20070101
  2. ATARAX [Concomitant]
     Dosage: NOT SPECIFED

REACTIONS (8)
  - BLOOD PRESSURE DECREASED [None]
  - DRUG TOXICITY [None]
  - ELECTROCARDIOGRAM QT PROLONGED [None]
  - HYPOTENSION [None]
  - HYPOTHERMIA [None]
  - LOSS OF CONSCIOUSNESS [None]
  - PULSE ABSENT [None]
  - RESPIRATORY DEPRESSION [None]
